FAERS Safety Report 7014822-4 (Version None)
Quarter: 2010Q3

REPORT INFORMATION
  Report Type: 
  Country: None (occurrence: None)
  Receive Date: 20100927
  Receipt Date: 20100922
  Transmission Date: 20110219
  Serious: Yes (Hospitalization)
  Sender: FDA-Public Use
  Company Number: FR-BRISTOL-MYERS SQUIBB COMPANY-15302557

PATIENT
  Age: 65 Year
  Sex: Male

DRUGS (4)
  1. ACTISKENAN CAPS 10 MG [Suspect]
     Indication: PAIN
     Route: 048
     Dates: start: 20100501, end: 20100613
  2. PARAPLATIN [Suspect]
     Indication: COLON CANCER
  3. ETOPOSIDE [Suspect]
     Indication: COLON CANCER
  4. DURAGESIC-100 [Suspect]
     Indication: PAIN
     Dosage: 8.4 MG/21 CM2.DUROGESIC (FENTANYL) 50 MICROGRAM/HOUR .1 DF: 1 PATCH
     Route: 061
     Dates: start: 20100501, end: 20100613

REACTIONS (1)
  - FAECALOMA [None]
